FAERS Safety Report 22366047 (Version 1)
Quarter: 2023Q2

REPORT INFORMATION
  Report Type: Spontaneous
  Country: US (occurrence: None)
  Receive Date: 20230524
  Receipt Date: 20230524
  Transmission Date: 20230721
  Serious: No
  Sender: FDA-Public Use
  Company Number: None

PATIENT
  Sex: Male

DRUGS (11)
  1. ABIRATERONE ACETATE [Suspect]
     Active Substance: ABIRATERONE ACETATE
     Indication: Prostate cancer
     Dosage: OTHER QUANTITY : 4T;?FREQUENCY : DAILY;?
     Route: 048
  2. DUTASTERIDE [Concomitant]
     Active Substance: DUTASTERIDE
  3. GLIPIZIDE [Concomitant]
     Active Substance: GLIPIZIDE
  4. INFLUENZA VIRUS VACCINE [Concomitant]
     Active Substance: INFLUENZA VIRUS VACCINE
  5. LISINOPRIL [Concomitant]
     Active Substance: LISINOPRIL
  6. METFORMIN [Concomitant]
     Active Substance: METFORMIN HYDROCHLORIDE
  7. METOPROLOL [Concomitant]
     Active Substance: METOPROLOL
  8. MODERNA COVID-19 VACCINE [Concomitant]
     Active Substance: ELASOMERAN
  9. OSCAL 500/200 D-3 [Concomitant]
  10. SIMVASTATIN [Concomitant]
     Active Substance: SIMVASTATIN
  11. PREDNISONE [Concomitant]
     Active Substance: PREDNISONE

REACTIONS (2)
  - Prostate cancer [None]
  - Malignant neoplasm progression [None]
